FAERS Safety Report 5529013-3 (Version None)
Quarter: 2007Q4

REPORT INFORMATION
  Report Type: 
  Country: None (occurrence: None)
  Receive Date: 20071119
  Receipt Date: 20070820
  Transmission Date: 20080405
  Serious: No
  Sender: FDA-Public Use
  Company Number: TPA2007A01763

PATIENT
  Sex: Female

DRUGS (5)
  1. ROZEREM [Suspect]
     Dosage: 8 MG, QHS, PER ORAL
     Route: 048
  2. ZOLOFT [Concomitant]
  3. COUMADIN [Concomitant]
  4. LASIX [Concomitant]
  5. XENICAL [Concomitant]

REACTIONS (1)
  - BLOOD PROLACTIN INCREASED [None]
